FAERS Safety Report 4366237-5 (Version None)
Quarter: 2004Q2

REPORT INFORMATION
  Report Type: 
  Country: None (occurrence: None)
  Receive Date: 20040527
  Receipt Date: 20040517
  Transmission Date: 20050107
  Serious: Yes (Life-Threatening)
  Sender: FDA-Public Use
  Company Number: GB-JNJFOC-20031102704

PATIENT
  Sex: Female

DRUGS (6)
  1. RISPERDAL [Suspect]
     Indication: DEPRESSION
     Route: 049
  2. RISPERDAL [Suspect]
     Indication: AGITATION
     Route: 049
  3. DIGOXIN [Concomitant]
     Dosage: 125MG + 62.5MG
  4. ENALAPRIL [Concomitant]
  5. WARFARIN SODIUM [Concomitant]
  6. BENDROFLUAZIDE [Concomitant]
     Route: 065

REACTIONS (5)
  - DEPRESSED LEVEL OF CONSCIOUSNESS [None]
  - DRUG LEVEL INCREASED [None]
  - GENERAL PHYSICAL HEALTH DETERIORATION [None]
  - INCONTINENCE [None]
  - RESPIRATORY DEPRESSION [None]
